FAERS Safety Report 5412207-5 (Version None)
Quarter: 2007Q3

REPORT INFORMATION
  Report Type: 
  Country: None (occurrence: None)
  Receive Date: 20070713
  Receipt Date: 20070514
  Transmission Date: 20080115
  Serious: No
  Sender: FDA-Public Use
  Company Number: 2007SP001790

PATIENT
  Age: 64 Year
  Sex: Female
  Weight: 61.2356 kg

DRUGS (9)
  1. LUNESTA [Suspect]
     Indication: INSOMNIA
     Dosage: 2 MG; ;ORAL; 3 MG; ;ORAL
     Route: 048
     Dates: start: 20070101
  2. PREDNISONE TAB [Concomitant]
  3. ESTRADIOL [Concomitant]
  4. PROVERA [Concomitant]
  5. COMBIVENT [Concomitant]
  6. ADVAIR DISKUS 100/50 [Concomitant]
  7. TIOTROPIUM BROMIDE [Concomitant]
  8. CELEBREX [Concomitant]
  9. CLONAZEPAM [Concomitant]

REACTIONS (2)
  - INSOMNIA [None]
  - SOMNOLENCE [None]
